FAERS Safety Report 7402877-4 (Version None)
Quarter: 2011Q1

REPORT INFORMATION
  Report Type: 
  Country: None (occurrence: None)
  Receive Date: 20110329
  Receipt Date: 20110318
  Transmission Date: 20110831
  Serious: Yes (Hospitalization)
  Sender: FDA-Public Use
  Company Number: SPI201100069

PATIENT
  Age: 60 Year
  Sex: Male
  Weight: 63.5 kg

DRUGS (4)
  1. UNKNOWN ANTI-PARKINSONIAN [Concomitant]
  2. UNKNOWN MEDICATION [Concomitant]
  3. METHADONE HCL (METHADONE HYDROCHLORIDE) [Concomitant]
  4. AMITIZA [Suspect]
     Indication: CONSTIPATION
     Dosage: 8 MCG, QD, ORAL
     Route: 048
     Dates: start: 20110310, end: 20110311

REACTIONS (3)
  - DIARRHOEA [None]
  - BLOOD PRESSURE DECREASED [None]
  - PYREXIA [None]
